FAERS Safety Report 14553479 (Version 1)
Quarter: 2018Q1

REPORT INFORMATION
  Report Type: Spontaneous
  Country: US (occurrence: US)
  Receive Date: 20180220
  Receipt Date: 20180220
  Transmission Date: 20180509
  Serious: No
  Sender: FDA-Public Use
  Company Number: US-PERRIGO-17US003193

PATIENT
  Age: 69 Year
  Sex: Female
  Weight: 56.24 kg

DRUGS (1)
  1. CICLOPIROX. [Suspect]
     Active Substance: CICLOPIROX
     Indication: TINEA PEDIS
     Dosage: ONE APPLICATION, SINGLE
     Route: 061
     Dates: start: 20170407, end: 20170407

REACTIONS (1)
  - Expired product administered [Recovered/Resolved]

NARRATIVE: CASE EVENT DATE: 20170407
